FAERS Safety Report 4630999-X (Version None)
Quarter: 2005Q2

REPORT INFORMATION
  Report Type: 
  Country: None (occurrence: None)
  Receive Date: 20050406
  Receipt Date: 20050406
  Transmission Date: 20051028
  Serious: Yes (Life-Threatening, Hospitalization)
  Sender: FDA-Public Use
  Company Number: None

PATIENT
  Sex: Male
  Weight: 86 kg

DRUGS (1)
  1. NABUMETONE [Suspect]
     Indication: MUSCULOSKELETAL PAIN
     Dates: start: 20050323, end: 20050328

REACTIONS (1)
  - STEVENS-JOHNSON SYNDROME [None]
